FAERS Safety Report 10247861 (Version 2)
Quarter: 2015Q1

REPORT INFORMATION
  Report Type: Spontaneous
  Country: US (occurrence: US)
  Receive Date: 20140619
  Receipt Date: 20150115
  Transmission Date: 20150720
  Serious: Yes (Disabling)
  Sender: FDA-Public Use
  Company Number: US-009507513-1406USA007316

PATIENT
  Sex: Male
  Weight: 80.73 kg

DRUGS (2)
  1. FINASTERIDE. [Suspect]
     Active Substance: FINASTERIDE
     Indication: ANDROGENETIC ALOPECIA
     Dosage: 5 MG SPLIT X4/1.25MG DAILY
     Route: 048
     Dates: start: 20110207, end: 201208
  2. PROPECIA [Suspect]
     Active Substance: FINASTERIDE
     Indication: ANDROGENETIC ALOPECIA
     Dosage: 1 MG, QD
     Route: 048
     Dates: start: 20101004, end: 20110206

REACTIONS (22)
  - Wrong technique in drug usage process [Unknown]
  - Urethral disorder [Unknown]
  - Orgasmic sensation decreased [Unknown]
  - Testicular atrophy [Unknown]
  - Sexual inhibition [Unknown]
  - Anxiety [Not Recovered/Not Resolved]
  - Sexual dysfunction [Not Recovered/Not Resolved]
  - Depression [Not Recovered/Not Resolved]
  - Cerumen impaction [Unknown]
  - Tonsillectomy [Unknown]
  - Oestradiol increased [Unknown]
  - Erectile dysfunction [Not Recovered/Not Resolved]
  - Ejaculation failure [Unknown]
  - Genital disorder male [Unknown]
  - Testicular failure [Unknown]
  - Drug ineffective [Unknown]
  - Thinking abnormal [Unknown]
  - Reproductive tract disorder [Unknown]
  - Loss of libido [Not Recovered/Not Resolved]
  - Ejaculation disorder [Unknown]
  - Cognitive disorder [Unknown]
  - Varicocele [Unknown]

NARRATIVE: CASE EVENT DATE: 20110207
